FAERS Safety Report 8081748-7 (Version None)
Quarter: 2012Q1

REPORT INFORMATION
  Report Type: 
  Country: None (occurrence: None)
  Receive Date: 20120130
  Receipt Date: 20120119
  Transmission Date: 20120608
  Serious: Yes (Hospitalization)
  Sender: FDA-Public Use
  Company Number: US-ELI_LILLY_AND_COMPANY-US201201007562

PATIENT
  Age: 46 Year
  Sex: Male

DRUGS (4)
  1. EFFIENT [Suspect]
     Indication: STENT PLACEMENT
     Dosage: 60 MG, ONCE
     Dates: start: 20120113, end: 20120113
  2. EFFIENT [Suspect]
     Dosage: 10 MG, UNKNOWN
     Dates: start: 20120114
  3. NITROGLYCERIN [Concomitant]
  4. HEPARIN [Concomitant]

REACTIONS (1)
  - CHEST PAIN [None]
